FAERS Safety Report 10185983 (Version 1)
Quarter: 2014Q2

REPORT INFORMATION
  Report Type: Spontaneous
  Country: CA (occurrence: CA)
  Receive Date: 20140521
  Receipt Date: 20140521
  Transmission Date: 20141212
  Serious: Yes (Other)
  Sender: FDA-Public Use
  Company Number: CA-PFIZER INC-2014132041

PATIENT
  Age: 45 Year
  Sex: Female

DRUGS (10)
  1. ANTILYMPHOCYTE IMMUNOGLOBULINS [Suspect]
     Dosage: 6 MG/KG, UNK
  2. RAPAMUNE [Suspect]
  3. DACLIZUMAB [Suspect]
     Route: 042
  4. ENBREL [Suspect]
     Dosage: 50 MG, 1X/DAY
     Route: 058
  5. ENBREL [Suspect]
     Dosage: 25 MG, UNK
  6. MYCOPHENOLATE MOFETIL [Suspect]
     Dosage: 1000 MG, 2X/DAY
     Route: 048
  7. NEORAL [Suspect]
  8. PROGRAF [Suspect]
     Dosage: 2.5 MG, 2X/DAY
     Route: 048
  9. PROGRAF [Suspect]
     Dosage: 3 MG, 2X/DAY
     Route: 048
  10. REMICADE [Suspect]
     Route: 042

REACTIONS (5)
  - Transplant rejection [Not Recovered/Not Resolved]
  - Transplant dysfunction [Not Recovered/Not Resolved]
  - Ovarian cyst [Not Recovered/Not Resolved]
  - Alopecia [Not Recovered/Not Resolved]
  - Acne [Not Recovered/Not Resolved]
